FAERS Safety Report 9103507 (Version 1)
Quarter: 2013Q1

REPORT INFORMATION
  Report Type: Spontaneous
  Country: BR (occurrence: None)
  Receive Date: 20130125
  Receipt Date: 20130125
  Transmission Date: 20140127
  Serious: Yes (Hospitalization)
  Sender: FDA-Public Use
  Company Number: B0861775A

PATIENT
  Age: 37 Year
  Sex: Male

DRUGS (5)
  1. LAMIVUDINE-HIV (GENERIC) (LAMIVUDINE-HIV) [Suspect]
     Indication: HIV INFECTION
  2. LOPINAVIR (LOPINAVIR) [Suspect]
     Indication: HIV INFECTION
  3. RITONAVIR (RITONAVIR) [Suspect]
     Indication: HIV INFECTION
  4. ITRACONAZOLE [Concomitant]
  5. AMOX. TRIHYD+POT.CLAVULAN [Concomitant]

REACTIONS (3)
  - Immune reconstitution inflammatory syndrome [None]
  - Sporotrichosis [None]
  - Polyarthritis [None]
